FAERS Safety Report 8555142-6 (Version None)
Quarter: 2012Q3

REPORT INFORMATION
  Report Type: 
  Country: None (occurrence: None)
  Receive Date: 20120731
  Receipt Date: 20120726
  Transmission Date: 20120928
  Serious: No
  Sender: FDA-Public Use
  Company Number: US-TEVA-350570USA

PATIENT
  Sex: Male
  Weight: 81.72 kg

DRUGS (4)
  1. LEXAPRO [Concomitant]
     Indication: DEPRESSION
     Dosage: 10 MILLIGRAM;
     Route: 048
  2. SINEMET [Concomitant]
     Indication: PARKINSON'S DISEASE
     Dosage: 150 MG/600 MG
     Route: 048
  3. SINEMET [Concomitant]
     Dosage: 50 MG/200 MG QHS
     Route: 048
  4. AZILECT [Suspect]
     Indication: PARKINSON'S DISEASE
     Dosage: 1 MILLIGRAM;
     Route: 048
     Dates: start: 20120625

REACTIONS (2)
  - FALL [None]
  - DIZZINESS [None]
